FAERS Safety Report 7998546-2 (Version None)
Quarter: 2011Q4

REPORT INFORMATION
  Report Type: 
  Country: None (occurrence: None)
  Receive Date: 20111221
  Receipt Date: 20111213
  Transmission Date: 20120403
  Serious: Yes (Other)
  Sender: FDA-Public Use
  Company Number: 2011SP004196

PATIENT
  Sex: Male
  Weight: 97 kg

DRUGS (9)
  1. LUNESTA [Suspect]
     Route: 048
     Dates: start: 20090101, end: 20101201
  2. VITAMIN D [Concomitant]
     Indication: PRODUCT USED FOR UNKNOWN INDICATION
     Route: 048
  3. MELATONIN [Concomitant]
     Indication: INSOMNIA
     Route: 048
  4. VITAMIN B12 /00056201/ [Concomitant]
     Indication: PRODUCT USED FOR UNKNOWN INDICATION
     Route: 048
  5. FLOMAX [Concomitant]
     Indication: PROSTATOMEGALY
     Route: 048
     Dates: start: 20111212
  6. CEPHALEXIN [Concomitant]
     Indication: INFECTION PROPHYLAXIS
     Route: 048
     Dates: start: 20111212
  7. LUNESTA [Suspect]
     Indication: INSOMNIA
     Route: 048
     Dates: start: 20111001
  8. LUNESTA [Suspect]
     Route: 048
     Dates: start: 20101201, end: 20111001
  9. ADVAIR DISKUS 100/50 [Concomitant]
     Indication: ASTHMA
     Route: 055

REACTIONS (2)
  - PROSTATOMEGALY [None]
  - PROSTATE CANCER [None]
